FAERS Safety Report 6260782-3 (Version None)
Quarter: 2009Q3

REPORT INFORMATION
  Report Type: 
  Country: None (occurrence: None)
  Receive Date: 20090707
  Receipt Date: 20090630
  Transmission Date: 20100115
  Serious: Yes (Other)
  Sender: FDA-Public Use
  Company Number: THQ2009A03294

PATIENT
  Age: 59 Year
  Sex: Female

DRUGS (7)
  1. ACTOPLUS MET [Suspect]
     Indication: TYPE 2 DIABETES MELLITUS
     Dosage: 1D/F (850/15 MG) (1 IN 1 D) PER ORAL
     Route: 048
     Dates: start: 20070101, end: 20090601
  2. GLICLAZIDE [Concomitant]
  3. DILTIAZEM [Concomitant]
  4. INDAPAMIDE [Concomitant]
  5. METFORMIN HCL [Concomitant]
  6. PANTOPRAZOLE SODIUM [Concomitant]
  7. ROSUVASTATIN CALCIUM [Concomitant]

REACTIONS (3)
  - BACK PAIN [None]
  - OSTEOPENIA [None]
  - OSTEOPOROSIS [None]
